FAERS Safety Report 24434893 (Version 10)
Quarter: 2025Q2

REPORT INFORMATION
  Report Type: Report from Study
  Country: US (occurrence: US)
  Receive Date: 20241014
  Receipt Date: 20250530
  Transmission Date: 20250717
  Serious: Yes (Other)
  Sender: SUNOVION
  Company Number: US-SUMITOMO PHARMA SWITZERLAND GMBH-2024SPA003551

PATIENT

DRUGS (17)
  1. ORGOVYX [Suspect]
     Active Substance: RELUGOLIX
     Indication: Prostate cancer
     Dosage: 360 MG, SINGLE
     Route: 048
     Dates: start: 202403, end: 202403
  2. ORGOVYX [Suspect]
     Active Substance: RELUGOLIX
     Dosage: 120 MG, QD
     Route: 048
     Dates: start: 202403
  3. NUBEQA [Concomitant]
     Active Substance: DAROLUTAMIDE
     Indication: Prostate cancer
     Dosage: 600 MG, BID
     Route: 048
     Dates: start: 202404
  4. NUBEQA [Concomitant]
     Active Substance: DAROLUTAMIDE
     Route: 048
  5. METOPROLOL SUCCINATE [Concomitant]
     Active Substance: METOPROLOL SUCCINATE
     Route: 048
  6. TAMSULOSIN HYDROCHLORIDE [Concomitant]
     Active Substance: TAMSULOSIN HYDROCHLORIDE
     Route: 048
  7. PRISTIQ EXTENDED-RELEASE [Concomitant]
     Active Substance: DESVENLAFAXINE SUCCINATE
     Route: 048
  8. PIFELTRO [Concomitant]
     Active Substance: DORAVIRINE
     Route: 048
  9. FINASTERIDE [Concomitant]
     Active Substance: FINASTERIDE
     Route: 048
  10. DESVENLAFAXINE SUCCINATE [Concomitant]
     Active Substance: DESVENLAFAXINE SUCCINATE
     Route: 048
  11. OMEPRAZOLE [Concomitant]
     Active Substance: OMEPRAZOLE
     Route: 048
  12. BUSPIRONE [Concomitant]
     Active Substance: BUSPIRONE HYDROCHLORIDE
     Route: 048
  13. HYDROCHLOROTHIAZIDE [Concomitant]
     Active Substance: HYDROCHLOROTHIAZIDE
     Route: 048
  14. TIVICAY [Concomitant]
     Active Substance: DOLUTEGRAVIR SODIUM
     Route: 048
  15. VALSARTAN [Concomitant]
     Active Substance: VALSARTAN
     Route: 048
  16. DESONIDE [Concomitant]
     Active Substance: DESONIDE
     Route: 065
  17. BISACODYL [Concomitant]
     Active Substance: BISACODYL
     Route: 065

REACTIONS (11)
  - Prostatectomy [Unknown]
  - Dry skin [Unknown]
  - Escherichia infection [Recovered/Resolved]
  - Frequent bowel movements [Unknown]
  - Nocturia [Unknown]
  - Flatulence [Unknown]
  - Peripheral swelling [Unknown]
  - Dizziness [Unknown]
  - Fatigue [Unknown]
  - Diarrhoea [Unknown]
  - Constipation [Unknown]
